FAERS Safety Report 21797563 (Version 1)
Quarter: 2022Q4

REPORT INFORMATION
  Report Type: Spontaneous
  Country: US (occurrence: US)
  Receive Date: 20221230
  Receipt Date: 20221230
  Transmission Date: 20230113
  Serious: Yes (Hospitalization, Other)
  Sender: FDA-Public Use
  Company Number: US-EDENBRIDGE PHARMACEUTICALS, LLC-US-2022EDE000059

PATIENT
  Sex: Male

DRUGS (14)
  1. IVERMECTIN [Suspect]
     Active Substance: IVERMECTIN
     Indication: COVID-19
     Dosage: ESCALATING DAILY DOSES, UP TO 100 MG, QD
     Route: 065
  2. HERBALS [Concomitant]
     Active Substance: HERBALS
     Indication: Product used for unknown indication
     Dosage: UNK
     Route: 065
  3. UVA URSI [ARCTOSTAPHYLOS UVA-URSI] [Concomitant]
     Indication: Product used for unknown indication
     Dosage: UNK
     Route: 065
  4. CHI SHAO [Concomitant]
     Indication: Product used for unknown indication
     Dosage: UNK
     Route: 065
  5. SERRAPEPTASE [Concomitant]
     Active Substance: SERRAPEPTASE
     Indication: Product used for unknown indication
     Dosage: UNK
     Route: 065
  6. BURDOCK [ARCTIUM LAPPA] [Concomitant]
     Indication: Product used for unknown indication
     Dosage: UNK
     Route: 065
  7. SCHISANDRA [Concomitant]
     Indication: Product used for unknown indication
     Dosage: UNK
     Route: 065
  8. MULLEIN [Concomitant]
     Indication: Product used for unknown indication
     Dosage: UNK
     Route: 065
  9. BLADDERWRACK [Concomitant]
     Indication: Product used for unknown indication
     Dosage: UNK
     Route: 065
  10. DANDELION [Concomitant]
     Active Substance: TARAXACUM OFFICINALE POLLEN
     Indication: Product used for unknown indication
     Dosage: UNK
     Route: 065
  11. NEEM [Concomitant]
     Indication: Product used for unknown indication
     Dosage: UNK
     Route: 065
  12. NETTLE LEAF [Concomitant]
     Indication: Product used for unknown indication
     Dosage: UNK
     Route: 065
  13. NIACIN [Concomitant]
     Active Substance: NIACIN
     Indication: Product used for unknown indication
     Dosage: UNK
     Route: 065
  14. DIETARY SUPPLEMENT [Concomitant]
     Active Substance: DIETARY SUPPLEMENT
     Indication: Product used for unknown indication
     Dosage: UNK
     Route: 065

REACTIONS (3)
  - Acute hepatic failure [Unknown]
  - Overdose [Unknown]
  - Product use in unapproved indication [Unknown]
